FAERS Safety Report 10776174 (Version 1)
Quarter: 2015Q1

REPORT INFORMATION
  Report Type: Spontaneous
  Country: US (occurrence: None)
  Receive Date: 20150205
  Receipt Date: 20150205
  Transmission Date: 20150721
  Serious: No
  Sender: FDA-Public Use
  Company Number: None

PATIENT

DRUGS (2)
  1. MIDAZOLAM HYDROCH [Suspect]
     Active Substance: MIDAZOLAM HYDROCHLORIDE
     Dosage: INTRAMUSCULAR OR INT
     Route: 030
  2. MIDAZOLAM [Suspect]
     Active Substance: MIDAZOLAM\MIDAZOLAM HYDROCHLORIDE
     Dosage: INTRAMUSCULAR OR INT
     Route: 030

REACTIONS (1)
  - Product packaging issue [None]
